FAERS Safety Report 5677256-0 (Version None)
Quarter: 2008Q1

REPORT INFORMATION
  Report Type: 
  Country: None (occurrence: None)
  Receive Date: 20080321
  Receipt Date: 20080321
  Transmission Date: 20080703
  Serious: Yes (Hospitalization)
  Sender: FDA-Public Use
  Company Number: None

PATIENT
  Age: 51 Year
  Sex: Male

DRUGS (1)
  1. AMLODIPINE [Suspect]
     Indication: HYPERTENSION
     Dosage: 10MG EVERY DAY PO
     Route: 048
     Dates: start: 20071204, end: 20080106

REACTIONS (5)
  - DYSPHAGIA [None]
  - HEADACHE [None]
  - HYPERTENSION [None]
  - HYPERTENSIVE CRISIS [None]
  - HYPOAESTHESIA FACIAL [None]
